FAERS Safety Report 7074199-5 (Version None)
Quarter: 2010Q4

REPORT INFORMATION
  Report Type: 
  Country: None (occurrence: None)
  Receive Date: 20101029
  Receipt Date: 20101028
  Transmission Date: 20110411
  Serious: Yes (Other)
  Sender: FDA-Public Use
  Company Number: US-WYE-H16711310

PATIENT
  Sex: Female

DRUGS (3)
  1. PRISTIQ [Suspect]
     Route: 048
  2. TRAZODONE [Concomitant]
  3. GEODON [Suspect]

REACTIONS (1)
  - SELF-INJURIOUS IDEATION [None]
